FAERS Safety Report 12897785 (Version 2)
Quarter: 2016Q4

REPORT INFORMATION
  Report Type: Spontaneous
  Country: US (occurrence: US)
  Receive Date: 20161031
  Receipt Date: 20161121
  Transmission Date: 20170207
  Serious: Yes (Other)
  Sender: FDA-Public Use
  Company Number: US-PFIZER INC-2016500935

PATIENT
  Age: 37 Year
  Sex: Female

DRUGS (4)
  1. LYRICA [Suspect]
     Active Substance: PREGABALIN
     Indication: NEURALGIA
  2. LYRICA [Suspect]
     Active Substance: PREGABALIN
     Indication: PAIN IN EXTREMITY
  3. LYRICA [Suspect]
     Active Substance: PREGABALIN
     Indication: NECK PAIN
     Dosage: UNK
  4. LYRICA [Suspect]
     Active Substance: PREGABALIN
     Indication: BACK PAIN
     Dosage: 20 MG, UNK (20 MG 3-4 TIMES A DAY)
     Dates: end: 201605

REACTIONS (15)
  - Tooth discolouration [Unknown]
  - Tooth loss [Unknown]
  - Teeth brittle [Unknown]
  - Tooth erosion [Not Recovered/Not Resolved]
  - Toothache [Unknown]
  - Product use issue [Unknown]
  - Cardiac disorder [Not Recovered/Not Resolved]
  - Weight decreased [Unknown]
  - Drug effect decreased [Unknown]
  - Dental caries [Unknown]
  - Threat of redundancy [Unknown]
  - Activities of daily living impaired [Unknown]
  - Fear [Unknown]
  - Major depression [Unknown]
  - Intentional product misuse [Unknown]

NARRATIVE: CASE EVENT DATE: 2006
